FAERS Safety Report 19295708 (Version 1)
Quarter: 2021Q2

REPORT INFORMATION
  Report Type: Spontaneous
  Country: CN (occurrence: CN)
  Receive Date: 20210524
  Receipt Date: 20210524
  Transmission Date: 20210717
  Serious: Yes (Hospitalization, Other)
  Sender: FDA-Public Use
  Company Number: CN-PFIZER INC-2021522335

PATIENT
  Age: 40 Year
  Sex: Male
  Weight: 100 kg

DRUGS (1)
  1. INLYTA [Suspect]
     Active Substance: AXITINIB
     Indication: URINARY TRACT DISORDER
     Dosage: 7.5 MG, DAILY
     Route: 048
     Dates: start: 20210415

REACTIONS (12)
  - Wound dehiscence [Not Recovered/Not Resolved]
  - Haemorrhage subcutaneous [Not Recovered/Not Resolved]
  - Ulcer [Unknown]
  - Paraesthesia [Unknown]
  - Oedema [Unknown]
  - Dysphonia [Not Recovered/Not Resolved]
  - Blister [Unknown]
  - Effusion [Unknown]
  - Myalgia [Unknown]
  - Off label use [Unknown]
  - Blood pressure increased [Recovered/Resolved]
  - Extravasation blood [Not Recovered/Not Resolved]

NARRATIVE: CASE EVENT DATE: 202104
